FAERS Safety Report 6968427-1 (Version None)
Quarter: 2010Q3

REPORT INFORMATION
  Report Type: 
  Country: None (occurrence: None)
  Receive Date: 20100907
  Receipt Date: 20100830
  Transmission Date: 20110219
  Serious: Yes (Death)
  Sender: FDA-Public Use
  Company Number: US-GILEAD-2010-0031509

PATIENT
  Sex: Female
  Weight: 45.4 kg

DRUGS (13)
  1. LETAIRIS [Suspect]
     Indication: PULMONARY ARTERIAL HYPERTENSION
     Route: 048
     Dates: start: 20091228
  2. FAMOTIDINE [Concomitant]
  3. NABUMETONE [Concomitant]
  4. PANTOPRAZOLE [Concomitant]
  5. LASIX [Concomitant]
  6. PROVENTIL [Concomitant]
  7. NASONEX [Concomitant]
  8. NIFEDIPINE [Concomitant]
  9. HYDRALAZINE [Concomitant]
  10. SYMBICORT [Concomitant]
  11. RENAL SOFTGEL [Concomitant]
  12. BENADRYL [Concomitant]
  13. ISOSORBIDE [Concomitant]

REACTIONS (1)
  - DEATH [None]
